FAERS Safety Report 24575534 (Version 2)
Quarter: 2024Q4

REPORT INFORMATION
  Report Type: Spontaneous
  Country: US (occurrence: US)
  Receive Date: 20241104
  Receipt Date: 20241204
  Transmission Date: 20250114
  Serious: Yes (Other)
  Sender: ITALFARMACO SPA
  Company Number: US-ITALFARMACO SPA-2164358

PATIENT
  Sex: Male
  Weight: 23.41 kg

DRUGS (10)
  1. DUVYZAT [Suspect]
     Active Substance: GIVINOSTAT
     Indication: Duchenne muscular dystrophy
     Dates: start: 20240821
  2. CALCIUM CARBONATE [Concomitant]
     Active Substance: CALCIUM CARBONATE
  3. RANITIDINE [Concomitant]
     Active Substance: RANITIDINE
  4. LEVOCARNITINE [Concomitant]
     Active Substance: LEVOCARNITINE
  5. LOSARTAN [Concomitant]
     Active Substance: LOSARTAN
  6. EPLERENONE [Concomitant]
     Active Substance: EPLERENONE
  7. DEFLAZACORT [Concomitant]
     Active Substance: DEFLAZACORT
  8. CHOLECALCIFEROL [Concomitant]
     Active Substance: CHOLECALCIFEROL
  9. VILTOLARSEN [Concomitant]
     Active Substance: VILTOLARSEN
  10. TESTOSTERONE CYPIONATE [Concomitant]
     Active Substance: TESTOSTERONE CYPIONATE

REACTIONS (1)
  - Platelet count decreased [Not Recovered/Not Resolved]
